FAERS Safety Report 7148658-0 (Version None)
Quarter: 2010Q4

REPORT INFORMATION
  Report Type: 
  Country: None (occurrence: None)
  Receive Date: 20101122
  Receipt Date: 20101116
  Transmission Date: 20110411
  Serious: Yes (Hospitalization, Other)
  Sender: FDA-Public Use
  Company Number: 2010SP060785

PATIENT
  Age: 45 Year
  Sex: Female
  Weight: 69 kg

DRUGS (3)
  1. NUVARING [Suspect]
     Indication: CONTRACEPTION
     Dosage: QM;VAG
     Route: 067
     Dates: start: 20100601
  2. LANSOPRAZOLE [Concomitant]
  3. CENTRUM /00554501/ [Concomitant]

REACTIONS (3)
  - AMENORRHOEA [None]
  - CHOLECYSTITIS ACUTE [None]
  - WITHDRAWAL BLEED [None]
